FAERS Safety Report 6828193-7 (Version None)
Quarter: 2010Q3

REPORT INFORMATION
  Report Type: 
  Country: None (occurrence: None)
  Receive Date: 20100709
  Receipt Date: 20100701
  Transmission Date: 20110219
  Serious: Yes (Hospitalization)
  Sender: FDA-Public Use
  Company Number: US-ABBOTT-10P-163-0654959-00

PATIENT
  Sex: Female
  Weight: 63.56 kg

DRUGS (6)
  1. SYNTHROID [Suspect]
     Indication: THYROIDECTOMY
     Dates: start: 19580101
  2. SYNTHROID [Suspect]
     Route: 048
  3. CRESTOR [Suspect]
     Indication: BLOOD CHOLESTEROL INCREASED
     Route: 048
     Dates: start: 20090101, end: 20090101
  4. CRESTOR [Suspect]
     Route: 048
     Dates: start: 20090101
  5. PLAVIX [Concomitant]
     Indication: PRODUCT USED FOR UNKNOWN INDICATION
  6. ASPIRIN [Concomitant]
     Indication: PRODUCT USED FOR UNKNOWN INDICATION
     Route: 048

REACTIONS (5)
  - AMNESIA [None]
  - FATIGUE [None]
  - MYOCARDIAL INFARCTION [None]
  - STRESS [None]
  - WEIGHT DECREASED [None]
